FAERS Safety Report 20474507 (Version 3)
Quarter: 2022Q2

REPORT INFORMATION
  Report Type: Spontaneous
  Country: JP (occurrence: JP)
  Receive Date: 20220215
  Receipt Date: 20220406
  Transmission Date: 20220720
  Serious: Yes (Other)
  Sender: FDA-Public Use
  Company Number: JP-CHUGAI-2022003213

PATIENT
  Age: 7 Year
  Sex: Female

DRUGS (2)
  1. EVRYSDI [Suspect]
     Active Substance: RISDIPLAM
     Indication: Spinal muscular atrophy
     Route: 048
     Dates: start: 20211116, end: 20220111
  2. EVRYSDI [Suspect]
     Active Substance: RISDIPLAM
     Route: 048
     Dates: start: 20210221

REACTIONS (5)
  - Gastrointestinal haemorrhage [Recovered/Resolved]
  - Viral infection [Unknown]
  - Cellulitis [Recovering/Resolving]
  - General physical health deterioration [Unknown]
  - Rash [Unknown]

NARRATIVE: CASE EVENT DATE: 20220103
